FAERS Safety Report 16594786 (Version 4)
Quarter: 2019Q3

REPORT INFORMATION
  Report Type: Spontaneous
  Country: US (occurrence: US)
  Receive Date: 20190718
  Receipt Date: 20190930
  Transmission Date: 20191004
  Serious: Yes (Death, Other)
  Sender: FDA-Public Use
  Company Number: US-ELI_LILLY_AND_COMPANY-US201907007717

PATIENT
  Age: 72 Year
  Sex: Female

DRUGS (16)
  1. ATIVAN [Concomitant]
     Active Substance: LORAZEPAM
     Indication: ANXIETY
     Dosage: 1 MG, DAILY
     Route: 048
  2. FISH OIL [COD-LIVER OIL] [Concomitant]
     Indication: PRODUCT USED FOR UNKNOWN INDICATION
     Dosage: 1 MG, DAILY
     Route: 048
  3. DOXORUBICIN [Concomitant]
     Active Substance: DOXORUBICIN
     Indication: GRANULAR CELL TUMOUR
     Dosage: 750 MG, MONTHLY (1/M)
     Route: 041
     Dates: start: 20180904, end: 20181024
  4. DEXRAZOXANE. [Concomitant]
     Active Substance: DEXRAZOXANE
     Indication: GRANULAR CELL TUMOUR
     Dosage: 750 MG, MONTHLY (1/M)
     Dates: start: 20180904, end: 20181024
  5. KEFLEX [Concomitant]
     Active Substance: CEPHALEXIN
     Indication: PRODUCT USED FOR UNKNOWN INDICATION
     Dosage: 500 MG, EVERY 6 HRS
     Route: 048
  6. LYRICA [Concomitant]
     Active Substance: PREGABALIN
     Indication: PRODUCT USED FOR UNKNOWN INDICATION
     Dosage: 150 MG, BID
     Route: 048
  7. PROCHLORPERAZINE MALEATE KENT PHARM [Concomitant]
     Indication: NAUSEA
     Dosage: 10 MG, EVERY 6 HRS
     Route: 048
  8. SYNTHROID [Concomitant]
     Active Substance: LEVOTHYROXINE SODIUM
     Indication: PRODUCT USED FOR UNKNOWN INDICATION
     Dosage: 25 MG, UNKNOWN
     Route: 065
  9. DIGOXIN. [Concomitant]
     Active Substance: DIGOXIN
     Indication: PRODUCT USED FOR UNKNOWN INDICATION
     Dosage: 125 MG, BID
     Route: 048
  10. NIACIN. [Concomitant]
     Active Substance: NIACIN
     Indication: PRODUCT USED FOR UNKNOWN INDICATION
     Dosage: 500 MG, BID
     Route: 048
  11. SIMVASTATIN. [Concomitant]
     Active Substance: SIMVASTATIN
     Indication: PRODUCT USED FOR UNKNOWN INDICATION
     Dosage: 20 MG, DAILY
     Route: 048
  12. LARTRUVO [Suspect]
     Active Substance: OLARATUMAB
     Indication: GRANULAR CELL TUMOUR
     Dosage: 700 MG, MONTHLY (1/M)
     Route: 042
     Dates: start: 20180904, end: 20181024
  13. MIRALAX [Concomitant]
     Active Substance: POLYETHYLENE GLYCOL 3350
     Indication: PRODUCT USED FOR UNKNOWN INDICATION
     Dosage: 17 G, UNKNOWN
     Route: 048
  14. CALTRATE + D [CALCIUM CARBONATE;COLECALCIFERO [Concomitant]
     Indication: PRODUCT USED FOR UNKNOWN INDICATION
     Dosage: 600 MG, BID
     Route: 065
  15. NORCO [Concomitant]
     Active Substance: ACETAMINOPHEN\HYDROCODONE BITARTRATE
     Indication: PAIN
     Dosage: 1 DOSAGE FORM, UNKNOWN
     Route: 065
  16. PROCRIT [Concomitant]
     Active Substance: ERYTHROPOIETIN
     Indication: ANAEMIA
     Dosage: 40000 U, WEEKLY (1/W)
     Route: 058
     Dates: start: 20181003, end: 20181017

REACTIONS (8)
  - Off label use [Unknown]
  - Anaemia [Unknown]
  - Malignant neoplasm progression [Fatal]
  - Immune system disorder [Unknown]
  - Bone marrow disorder [Unknown]
  - Dyspnoea [Unknown]
  - Alopecia [Unknown]
  - Neutropenia [Unknown]
